FAERS Safety Report 8056042-0 (Version None)
Quarter: 2012Q1

REPORT INFORMATION
  Report Type: 
  Country: None (occurrence: None)
  Receive Date: 20120112
  Receipt Date: 20111227
  Transmission Date: 20120608
  Serious: Yes (Other)
  Sender: FDA-Public Use
  Company Number: 2012030756

PATIENT
  Sex: Male

DRUGS (2)
  1. STIMATE [Suspect]
     Indication: HAEMOSTASIS
     Dosage: NASAL, NASAL
     Route: 045
  2. STIMATE [Suspect]
     Indication: GINGIVAL BLEEDING
     Dosage: NASAL, NASAL
     Route: 045

REACTIONS (3)
  - DRUG INEFFECTIVE [None]
  - GINGIVAL BLEEDING [None]
  - IMPAIRED HEALING [None]
